FAERS Safety Report 14403739 (Version 1)
Quarter: 2018Q1

REPORT INFORMATION
  Report Type: Spontaneous
  Country: US (occurrence: US)
  Receive Date: 20180117
  Receipt Date: 20180117
  Transmission Date: 20180509
  Serious: No
  Sender: FDA-Public Use
  Company Number: US-009507513-1712USA010810

PATIENT
  Age: 21 Year
  Sex: Female
  Weight: 82.55 kg

DRUGS (1)
  1. NEXPLANON [Suspect]
     Active Substance: ETONOGESTREL
     Indication: CONTRACEPTION
     Dosage: IMPLANT, LEFT ARM, FREQUENCY: EVERY 3 YEARS
     Route: 059
     Dates: start: 20160912

REACTIONS (4)
  - Mood altered [Unknown]
  - Headache [Unknown]
  - Weight increased [Unknown]
  - Feeling abnormal [Unknown]

NARRATIVE: CASE EVENT DATE: 201701
